FAERS Safety Report 14730013 (Version 1)
Quarter: 2018Q2

REPORT INFORMATION
  Report Type: Spontaneous
  Country: CH (occurrence: CH)
  Receive Date: 20180406
  Receipt Date: 20180406
  Transmission Date: 20180711
  Serious: Yes (Hospitalization)
  Sender: FDA-Public Use
  Company Number: CH-TEVA-2018-CH-876966

PATIENT
  Age: 78 Year
  Sex: Female
  Weight: 100.4 kg

DRUGS (8)
  1. MADOPAR 125 TABLETTEN [Concomitant]
     Dosage: 250 MILLIGRAM DAILY;
     Route: 048
  2. PEMZEK [Concomitant]
     Dosage: 16 MILLIGRAM DAILY;
     Route: 048
  3. OEDEMEX TABLETTEN [Concomitant]
     Dosage: 40 MILLIGRAM DAILY;
     Route: 048
  4. AMLODIPIN-MEPHA 5 [Concomitant]
     Dosage: 10 MILLIGRAM DAILY;
     Route: 048
  5. CO-AMOXI-MEPHA 1000 LACTAB [Suspect]
     Active Substance: AMOXICILLIN\CLAVULANIC ACID
     Dosage: 2 GRAM DAILY;
     Route: 048
     Dates: start: 20180228, end: 20180306
  6. PANTOZOL [Concomitant]
     Active Substance: PANTOPRAZOLE SODIUM
     Dosage: 40 MILLIGRAM DAILY;
     Route: 048
  7. ASPIRIN CARDIO 100 FILMTABLETTEN [Concomitant]
     Active Substance: ASPIRIN
     Dosage: 100 MILLIGRAM DAILY;
     Route: 048
  8. DAFALGAN [Concomitant]
     Active Substance: ACETAMINOPHEN
     Dosage: 3 GRAM DAILY;
     Route: 048

REACTIONS (1)
  - Encephalitis [Recovering/Resolving]

NARRATIVE: CASE EVENT DATE: 20180303
